FAERS Safety Report 8916133 (Version 1)
Quarter: 2012Q4

REPORT INFORMATION
  Report Type: 
  Country: PL (occurrence: PL)
  Receive Date: 20121120
  Receipt Date: 20121120
  Transmission Date: 20130627
  Serious: Yes (Other)
  Sender: FDA-Public Use
  Company Number: PHHY2012PL105229

PATIENT
  Sex: Female

DRUGS (1)
  1. EXTAVIA [Suspect]

REACTIONS (1)
  - Breast mass [Unknown]
